FAERS Safety Report 20835057 (Version 1)
Quarter: 2022Q2

REPORT INFORMATION
  Report Type: Spontaneous
  Country: US (occurrence: None)
  Receive Date: 20220516
  Receipt Date: 20220516
  Transmission Date: 20220721
  Serious: Yes (Hospitalization, Other)
  Sender: FDA-Public Use
  Company Number: None

PATIENT
  Age: 83 Year
  Sex: Male

DRUGS (3)
  1. MYCOPHENOLATE MOFETIL [Suspect]
     Active Substance: MYCOPHENOLATE MOFETIL
     Indication: Renal transplant
     Dosage: 362MG TWICE A DAY ORAL?
     Route: 048
     Dates: start: 20180711
  2. ENVARSUS XR [Suspect]
     Active Substance: TACROLIMUS
     Indication: Renal transplant
     Dosage: 2MG DAILY ORAL?
     Route: 048
     Dates: start: 20180711
  3. PREDNISONE [Concomitant]

REACTIONS (2)
  - Bone disorder [None]
  - Asthenia [None]

NARRATIVE: CASE EVENT DATE: 20220513
